FAERS Safety Report 8844362 (Version 1)
Quarter: 2012Q4

REPORT INFORMATION
  Report Type: 
  Country: DE (occurrence: DE)
  Receive Date: 20121017
  Receipt Date: 20121017
  Transmission Date: 20130627
  Serious: Yes (Hospitalization)
  Sender: FDA-Public Use
  Company Number: DE-JNJFOC-20121007714

PATIENT
  Age: 68 Year
  Sex: Female

DRUGS (2)
  1. REGAINE FRAUEN [Suspect]
     Route: 061
  2. REGAINE FRAUEN [Suspect]
     Indication: PRODUCT USED FOR UNKNOWN INDICATION
     Dosage: dose and frequency unspecified
     Route: 061
     Dates: start: 2007, end: 2012

REACTIONS (2)
  - Atrial fibrillation [Unknown]
  - Arrhythmia [Unknown]
